FAERS Safety Report 5188043-4 (Version None)
Quarter: 2006Q4

REPORT INFORMATION
  Report Type: 
  Country: None (occurrence: None)
  Receive Date: 20061214
  Receipt Date: 20061205
  Transmission Date: 20070319
  Serious: Yes (Other)
  Sender: FDA-Public Use
  Company Number: 2006SP008004

PATIENT
  Age: 69 Year
  Sex: Female

DRUGS (2)
  1. AERIUS (DESLORATADINE) (DESLORATADINE) [Suspect]
     Indication: NASAL POLYPS
     Dosage: 5 MG; QD; PO
     Route: 048
  2. DIURETIC NOS [Concomitant]

REACTIONS (1)
  - ANAEMIA [None]
